FAERS Safety Report 11171092 (Version 1)
Quarter: 2015Q2

REPORT INFORMATION
  Report Type: Spontaneous
  Country: US (occurrence: US)
  Receive Date: 20150608
  Receipt Date: 20150608
  Transmission Date: 20150821
  Serious: No
  Sender: FDA-Public Use
  Company Number: US-009507513-1506USA004030

PATIENT
  Age: 64 Year
  Sex: Male

DRUGS (1)
  1. RIBAVIRIN (WARRICK) [Suspect]
     Active Substance: RIBAVIRIN
     Dosage: UNK
     Route: 048

REACTIONS (2)
  - Fatigue [Recovered/Resolved]
  - Drug ineffective [Unknown]
